FAERS Safety Report 18099301 (Version 1)
Quarter: 2020Q3

REPORT INFORMATION
  Report Type: Spontaneous
  Country: US (occurrence: US)
  Receive Date: 20200731
  Receipt Date: 20200731
  Transmission Date: 20201103
  Serious: Yes (Disabling)
  Sender: FDA-Public Use
  Company Number: None

PATIENT
  Age: 61 Year
  Sex: Female
  Weight: 63.9 kg

DRUGS (13)
  1. ALPHALIPOIC ACID [Concomitant]
  2. MELATONIN [Concomitant]
     Active Substance: MELATONIN
  3. HUMIRA [Suspect]
     Active Substance: ADALIMUMAB
     Indication: RHEUMATOID ARTHRITIS
     Dosage: ?          QUANTITY:1 INJECTION(S);OTHER FREQUENCY:EVERY OTHER WEEK;?
     Route: 058
     Dates: start: 20190703, end: 20200616
  4. LECITHIN [Concomitant]
     Active Substance: LECITHIN
  5. LORATADINE. [Concomitant]
     Active Substance: LORATADINE
  6. VITAMIN D [Concomitant]
     Active Substance: VITAMIN D NOS
  7. OMEPRAZOLE. [Concomitant]
     Active Substance: OMEPRAZOLE
  8. CALCIUM [Concomitant]
     Active Substance: CALCIUM
  9. VITAMIN E [Concomitant]
     Active Substance: .ALPHA.-TOCOPHEROL
  10. PAROXETINE. [Concomitant]
     Active Substance: PAROXETINE
  11. MAGNESIUM [Concomitant]
     Active Substance: MAGNESIUM
  12. HYDROXYCHLOROQUINE [Concomitant]
     Active Substance: HYDROXYCHLOROQUINE
  13. VITAMIN C [Concomitant]
     Active Substance: ASCORBIC ACID

REACTIONS (8)
  - Insomnia [None]
  - Psoriasis [None]
  - Gastrooesophageal reflux disease [None]
  - Condition aggravated [None]
  - Alopecia [None]
  - Rash [None]
  - Paranasal sinus hyposecretion [None]
  - Dry mouth [None]

NARRATIVE: CASE EVENT DATE: 20200101
